FAERS Safety Report 24791483 (Version 1)
Quarter: 2024Q4

REPORT INFORMATION
  Report Type: Spontaneous
  Country: US (occurrence: US)
  Receive Date: 20241231
  Receipt Date: 20241231
  Transmission Date: 20250114
  Serious: No
  Sender: STALLERGENES
  Company Number: US-AIMMUNE THERAPEUTICS, INC.-2024AIMT00432

PATIENT
  Age: 5 Year
  Sex: Female

DRUGS (7)
  1. PALFORZIA [Suspect]
     Active Substance: PEANUT
     Indication: Food allergy
     Dosage: IDE (0.5-6.0 MG), ONCE
     Dates: start: 20230420, end: 20230420
  2. PALFORZIA [Suspect]
     Active Substance: PEANUT
     Indication: Anaphylactic reaction
     Dosage: 240 MG, ONCE, LAST DOSE PRIOR EVENTS
     Dates: start: 20240222, end: 20240222
  3. PALFORZIA [Suspect]
     Active Substance: PEANUT
     Dosage: 230 MG, 1X/DAY, DOSE DECREASED
     Dates: start: 20240223, end: 20240322
  4. PALFORZIA [Suspect]
     Active Substance: PEANUT
     Dosage: 240 MG, ONCE, LAST DOSE PRIOR EVENTS
     Dates: start: 20240322, end: 20240322
  5. PALFORZIA [Suspect]
     Active Substance: PEANUT
     Dosage: 230 MG, 1X/DAY, DOSE DECREASED
     Dates: start: 20240323, end: 20240430
  6. PALFORZIA [Suspect]
     Active Substance: PEANUT
     Dosage: 240 MG, 1X/DAY
     Dates: start: 20240430
  7. ALBUTEROL SULFATE [Concomitant]
     Active Substance: ALBUTEROL SULFATE
     Indication: Product used for unknown indication

REACTIONS (7)
  - Cough [Recovered/Resolved]
  - Vomiting [Recovered/Resolved]
  - Throat irritation [Recovered/Resolved]
  - Dyspnoea [Recovered/Resolved]
  - Abdominal pain upper [Recovered/Resolved]
  - Off label use [Unknown]
  - Illness [Unknown]

NARRATIVE: CASE EVENT DATE: 20240222
